FAERS Safety Report 8179829-2 (Version None)
Quarter: 2012Q1

REPORT INFORMATION
  Report Type: 
  Country: None (occurrence: None)
  Receive Date: 20120229
  Receipt Date: 20120229
  Transmission Date: 20120608
  Serious: Yes (Hospitalization)
  Sender: FDA-Public Use
  Company Number: None

PATIENT
  Sex: Female
  Weight: 58 kg

DRUGS (4)
  1. LOVENOX [Concomitant]
  2. SENNA TABLET [Concomitant]
  3. CISPLATIN [Suspect]
     Dosage: 62 MG
  4. LEVOFLOXACIN [Concomitant]

REACTIONS (7)
  - CONSTIPATION [None]
  - CULTURE URINE POSITIVE [None]
  - PYREXIA [None]
  - COUGH [None]
  - VOMITING [None]
  - NAUSEA [None]
  - ABDOMINAL PAIN [None]
